FAERS Safety Report 6302034-9 (Version None)
Quarter: 2009Q3

REPORT INFORMATION
  Report Type: 
  Country: None (occurrence: None)
  Receive Date: 20090807
  Receipt Date: 20090729
  Transmission Date: 20100115
  Serious: Yes (Other)
  Sender: FDA-Public Use
  Company Number: IN-ABBOTT-09P-078-0588110-00

PATIENT
  Age: 34 Year
  Sex: Female
  Weight: 42 kg

DRUGS (9)
  1. CYCLOSPORINE [Suspect]
     Indication: IMMUNOSUPPRESSION
     Dosage: 8 MG/KG/D
  2. MYCOPHENOLATE MOFETIL [Concomitant]
     Indication: IMMUNOSUPPRESSION
  3. DACLIZUMAB [Concomitant]
     Indication: DRUG USE FOR UNKNOWN INDICATION
     Dosage: NOT REPORTED
  4. METHYLPREDNISOLONE [Concomitant]
     Indication: STEROID THERAPY
  5. METHYLPREDNISOLONE [Concomitant]
  6. METHYLPREDNISOLONE [Concomitant]
  7. BUPIVACAINE [Concomitant]
     Indication: ANALGESIA
     Dosage: AT 3-7 ML/H FOR THE FIRST 12 HRS AFTER SURGERY
  8. FENTANYL [Concomitant]
     Indication: ANALGESIA
     Dosage: 2 MCG/ML AT 3-7 ML/H FOR THE FIRST 12 HRS AFTER SURGERY
     Route: 008
  9. PREDNISOLONE [Concomitant]
     Indication: DRUG USE FOR UNKNOWN INDICATION
     Route: 048

REACTIONS (1)
  - REVERSIBLE POSTERIOR LEUKOENCEPHALOPATHY SYNDROME [None]
